FAERS Safety Report 8384960-2 (Version None)
Quarter: 2012Q2

REPORT INFORMATION
  Report Type: 
  Country: None (occurrence: None)
  Receive Date: 20120524
  Receipt Date: 20120518
  Transmission Date: 20120825
  Serious: Yes (Hospitalization)
  Sender: FDA-Public Use
  Company Number: PHHY2012US042885

PATIENT
  Age: 56 Year
  Sex: Male

DRUGS (3)
  1. LAMOTRIGINE [Suspect]
     Indication: CONVULSION
     Dosage: 200 MG, TID
     Route: 048
  2. CLONAZEPAM [Concomitant]
     Dosage: 1 MG, BID
     Route: 048
  3. LORAZEPAM [Concomitant]

REACTIONS (20)
  - INCOHERENT [None]
  - ELECTROCARDIOGRAM QT PROLONGED [None]
  - FALL [None]
  - HYPERREFLEXIA [None]
  - LACK OF SPONTANEOUS SPEECH [None]
  - NASAL SEPTUM DEVIATION [None]
  - DISORIENTATION [None]
  - FACIAL BONES FRACTURE [None]
  - RHABDOMYOLYSIS [None]
  - MENTAL STATUS CHANGES [None]
  - POSTICTAL STATE [None]
  - DISTURBANCE IN ATTENTION [None]
  - AGITATION [None]
  - ANTICONVULSANT DRUG LEVEL INCREASED [None]
  - GRAND MAL CONVULSION [None]
  - OVERDOSE [None]
  - INJURY [None]
  - MUSCLE SPASTICITY [None]
  - CONFUSIONAL STATE [None]
  - TONGUE BITING [None]
